FAERS Safety Report 7095465 (Version 2)
Quarter: 2019Q2

REPORT INFORMATION
  Report Type: Spontaneous
  Country: GB (occurrence: GB)
  Receive Date: 20090825
  Receipt Date: 20190413
  Transmission Date: 20190711
  Serious: Yes (Life-Threatening, Hospitalization)
  Sender: FDA-Public Use
  Company Number: GB-ROCHE-649721

PATIENT
  Age: 16 Year
  Sex: Female

DRUGS (1)
  1. TAMIFLU [Suspect]
     Active Substance: OSELTAMIVIR PHOSPHATE
     Indication: H1N1 INFLUENZA
     Dosage: REPORTED AS PRESCRIBED A DOUBLE DOSE
     Route: 065

REACTIONS (1)
  - Respiratory disorder [Recovered/Resolved]
